FAERS Safety Report 20566245 (Version 1)
Quarter: 2022Q1

REPORT INFORMATION
  Report Type: Report from Study
  Country: MX (occurrence: MX)
  Receive Date: 20220308
  Receipt Date: 20220308
  Transmission Date: 20220423
  Serious: Yes (Hospitalization, Other)
  Sender: FDA-Public Use
  Company Number: MX-NOVARTISPH-PHHY2014MX164864

PATIENT
  Age: 66 Year
  Sex: Female
  Weight: 67 kg

DRUGS (10)
  1. METFORMIN HYDROCHLORIDE\VILDAGLIPTIN [Suspect]
     Active Substance: METFORMIN HYDROCHLORIDE\VILDAGLIPTIN
     Indication: Diabetes mellitus
     Dosage: 1 DF (METFORMIN 500MG, VILDAGLIPTIN 50MG), BID (START: 3 YEARS AGO)
     Route: 048
  2. METFORMIN HYDROCHLORIDE\VILDAGLIPTIN [Suspect]
     Active Substance: METFORMIN HYDROCHLORIDE\VILDAGLIPTIN
     Dosage: 1 DF (METFORMIN 500MG, VILDAGLIPTIN 50MG), BID (START: 3 YEARS AGO)
     Route: 048
  3. METFORMIN HYDROCHLORIDE\VILDAGLIPTIN [Suspect]
     Active Substance: METFORMIN HYDROCHLORIDE\VILDAGLIPTIN
     Dosage: 2 DF (METFORMIN 500MG, VILDAGLIPTIN 50MG), QD
     Route: 048
     Dates: start: 2013
  4. METFORMIN HYDROCHLORIDE\VILDAGLIPTIN [Suspect]
     Active Substance: METFORMIN HYDROCHLORIDE\VILDAGLIPTIN
     Dosage: UNK, (50/ 500 MG)
     Route: 065
  5. SAFINOS [Concomitant]
     Indication: Vertigo
     Dosage: UNK
     Route: 048
     Dates: start: 201505
  6. VONTROL [Concomitant]
     Active Substance: DIPHENIDOL HYDROCHLORIDE
     Indication: Product used for unknown indication
     Dosage: 1 DF (25 MG), EVERY 12 HOURS
     Route: 065
     Dates: start: 20150608, end: 20150622
  7. SERENEX [Concomitant]
     Indication: Dizziness
     Dosage: 0.5 DF, QD (SINCE 1 YEAR)
     Route: 048
  8. CLONAZEPAM [Concomitant]
     Active Substance: CLONAZEPAM
     Indication: Anxiety
     Dosage: 0.25 DF, QD (SINCE 1 YEAR)
     Route: 048
  9. OXCARBAZEPINE [Concomitant]
     Active Substance: OXCARBAZEPINE
     Indication: Dizziness
     Dosage: 0.5 DF, QD
     Route: 048
     Dates: start: 20180908, end: 20180908
  10. AVALIDE [Concomitant]
     Active Substance: HYDROCHLOROTHIAZIDE\IRBESARTAN
     Indication: Hypertension
     Dosage: 1 DF, (IN THE MORNING) SINCE 6 YEARS AGO (50/500)
     Route: 048

REACTIONS (25)
  - Anxiety [Not Recovered/Not Resolved]
  - Hypertension [Recovering/Resolving]
  - Hypertension [Recovered/Resolved]
  - Nervousness [Unknown]
  - Fall [Recovered/Resolved]
  - Influenza [Unknown]
  - Pain in extremity [Not Recovered/Not Resolved]
  - Feeling abnormal [Unknown]
  - Contusion [Not Recovered/Not Resolved]
  - Pharyngeal disorder [Recovered/Resolved]
  - Pyrexia [Recovered/Resolved]
  - Food poisoning [Unknown]
  - Pyrexia [Recovered/Resolved]
  - Illness [Unknown]
  - Diarrhoea [Recovered/Resolved]
  - Vomiting [Recovered/Resolved]
  - Pharyngitis [Not Recovered/Not Resolved]
  - Discomfort [Not Recovered/Not Resolved]
  - Depression [Not Recovered/Not Resolved]
  - Decreased interest [Recovered/Resolved]
  - Fatigue [Recovered/Resolved]
  - Feeling abnormal [Recovered/Resolved]
  - Fear [Not Recovered/Not Resolved]
  - Dizziness [Not Recovered/Not Resolved]
  - Tremor [Recovered/Resolved]

NARRATIVE: CASE EVENT DATE: 20141215
